FAERS Safety Report 4761134-5 (Version None)
Quarter: 2005Q3

REPORT INFORMATION
  Report Type: 
  Country: None (occurrence: None)
  Receive Date: 20050902
  Receipt Date: 20050902
  Transmission Date: 20060218
  Serious: Yes (Disabling)
  Sender: FDA-Public Use
  Company Number: None

PATIENT
  Age: 45 Year
  Sex: Male
  Weight: 61.2356 kg

DRUGS (1)
  1. GENTAMICIN [Suspect]
     Indication: BACTERIAL INFECTION
     Dosage: 580 TO 500     DAILY    IV DRIP
     Route: 041
     Dates: start: 20050702, end: 20050814

REACTIONS (2)
  - BALANCE DISORDER [None]
  - DIZZINESS [None]
